FAERS Safety Report 9173599 (Version 4)
Quarter: 2013Q2

REPORT INFORMATION
  Report Type: Spontaneous
  Country: FR (occurrence: None)
  Receive Date: 20130201
  Receipt Date: 20130411
  Transmission Date: 20140414
  Serious: Yes (Other)
  Sender: FDA-Public Use
  Company Number: 2013034548

PATIENT
  Age: 21 Year
  Sex: Female

DRUGS (1)
  1. RHOPHYLAC [Suspect]
     Dosage: APPLICATION DATE: OCT-2012
     Dates: start: 20120820, end: 20120820

REACTIONS (3)
  - Suspected transmission of an infectious agent via product [None]
  - Cytomegalovirus test positive [None]
  - Exposure during pregnancy [None]
